FAERS Safety Report 21740328 (Version 1)
Quarter: 2022Q4

REPORT INFORMATION
  Report Type: Spontaneous
  Country: IT (occurrence: IT)
  Receive Date: 20221216
  Receipt Date: 20221216
  Transmission Date: 20230112
  Serious: Yes (Hospitalization)
  Sender: FDA-Public Use
  Company Number: IT-JAZZ-2022-IT-037844

PATIENT
  Age: 71 Year
  Sex: Female

DRUGS (1)
  1. XYREM [Suspect]
     Active Substance: SODIUM OXYBATE
     Indication: Narcolepsy
     Dosage: 5 GRAM
     Route: 048
     Dates: start: 20221112, end: 20221112

REACTIONS (3)
  - Sopor [Recovering/Resolving]
  - Somnolence [Recovering/Resolving]
  - Accidental overdose [Unknown]

NARRATIVE: CASE EVENT DATE: 20221112
